FAERS Safety Report 12281696 (Version 2)
Quarter: 2016Q2

REPORT INFORMATION
  Report Type: Spontaneous
  Country: LU (occurrence: LU)
  Receive Date: 20160419
  Receipt Date: 20160511
  Transmission Date: 20160815
  Serious: Yes (Hospitalization, Other)
  Sender: FDA-Public Use
  Company Number: LU-GLAXOSMITHKLINE-LU2016GSK051141

PATIENT
  Age: 33 Year
  Sex: Female

DRUGS (6)
  1. CEFUROXIME. [Suspect]
     Active Substance: CEFUROXIME
     Indication: PRODUCT USED FOR UNKNOWN INDICATION
     Dosage: UNK
     Dates: start: 20151124, end: 20151124
  2. KETANEST [Suspect]
     Active Substance: KETAMINE HYDROCHLORIDE
     Indication: INDUCTION OF ANAESTHESIA
     Dosage: UNK
     Route: 042
     Dates: start: 20151124, end: 20151124
  3. NAROPIN [Suspect]
     Active Substance: ROPIVACAINE HYDROCHLORIDE
     Indication: NEUROMUSCULAR BLOCKADE
     Dosage: UNK
     Route: 053
     Dates: start: 20151124, end: 20151124
  4. PROPOFOL FRESENIUS [Suspect]
     Active Substance: PROPOFOL
     Indication: ANAESTHESIA
     Dosage: 200 MG, BID
     Route: 042
     Dates: start: 20151124, end: 20151124
  5. ULTIVA [Suspect]
     Active Substance: REMIFENTANIL HYDROCHLORIDE
     Indication: ANAESTHESIA
     Dosage: 12 ML, Z
     Route: 042
     Dates: start: 20151124, end: 20151124
  6. POLARAMINE [Suspect]
     Active Substance: DEXCHLORPHENIRAMINE MALEATE
     Indication: PRODUCT USED FOR UNKNOWN INDICATION
     Dosage: UNK
     Route: 042
     Dates: start: 20151124, end: 20151124

REACTIONS (2)
  - Erythema [Unknown]
  - Anaphylactic reaction [Recovered/Resolved]

NARRATIVE: CASE EVENT DATE: 20151124
